FAERS Safety Report 5735936-2 (Version None)
Quarter: 2008Q2

REPORT INFORMATION
  Report Type: 
  Country: None (occurrence: None)
  Receive Date: 20080509
  Receipt Date: 20080429
  Transmission Date: 20081010
  Serious: Yes (Other)
  Sender: FDA-Public Use
  Company Number: CHPA2008US07595

PATIENT
  Age: 31 Year
  Sex: Female

DRUGS (1)
  1. BENEFIBER   (WHEAT DEXTRIN) POWDER [Suspect]
     Indication: NUTRITIONAL SUPPORT
     Dosage: 2 TSP, TID, ORAL
     Route: 048
     Dates: end: 20080429

REACTIONS (1)
  - GENERALISED OEDEMA [None]
